FAERS Safety Report 7844871-5 (Version None)
Quarter: 2011Q4

REPORT INFORMATION
  Report Type: 
  Country: None (occurrence: None)
  Receive Date: 20111025
  Receipt Date: 20111023
  Transmission Date: 20120403
  Serious: Yes (Hospitalization)
  Sender: FDA-Public Use
  Company Number: DE-GLAXOSMITHKLINE-D0072759A

PATIENT
  Sex: Female

DRUGS (3)
  1. ARIXTRA [Suspect]
     Dosage: 17.5MG SINGLE DOSE
     Route: 058
     Dates: start: 20110916, end: 20110916
  2. ETHANOL [Suspect]
     Route: 065
     Dates: start: 20110916, end: 20110916
  3. CITALOPRAM HYDROBROMIDE [Suspect]
     Dosage: 300MG SINGLE DOSE
     Route: 065
     Dates: start: 20110916, end: 20110916

REACTIONS (3)
  - VOMITING [None]
  - SOMNOLENCE [None]
  - SUICIDE ATTEMPT [None]
